FAERS Safety Report 10244109 (Version 3)
Quarter: 2014Q3

REPORT INFORMATION
  Report Type: Report from Study
  Country: MX (occurrence: MX)
  Receive Date: 20140618
  Receipt Date: 20140730
  Transmission Date: 20150326
  Serious: Yes (Death, Hospitalization, Other)
  Sender: FDA-Public Use
  Company Number: PHHY2012MX116526

PATIENT
  Age: 71 Year
  Sex: Female

DRUGS (5)
  1. NAFLURYL [Concomitant]
     Dosage: 1 UKN, DAILY
  2. CIPROFLOXACIN. [Concomitant]
     Active Substance: CIPROFLOXACIN
     Dosage: 2 UKN, Q12H
  3. EXFORGE [Suspect]
     Active Substance: AMLODIPINE BESYLATE\VALSARTAN
     Indication: HYPERTENSION
     Dosage: 1 TABLET (160/5 MG), DAILY
     Route: 048
     Dates: start: 201211, end: 2012
  4. SPIRIVA [Concomitant]
     Active Substance: TIOTROPIUM BROMIDE MONOHYDRATE
     Dosage: 1 DF, DAILY
     Dates: start: 201211
  5. ACETAMINOPHEN. [Concomitant]
     Active Substance: ACETAMINOPHEN
     Dosage: 1 UKN, Q8H

REACTIONS (6)
  - Nephrolithiasis [Recovering/Resolving]
  - Cerebrovascular accident [Unknown]
  - Inflammation [Recovered/Resolved]
  - Constipation [Recovered/Resolved]
  - Death [Fatal]
  - Aphasia [Unknown]

NARRATIVE: CASE EVENT DATE: 20121211
